FAERS Safety Report 4765652-5 (Version None)
Quarter: 2005Q3

REPORT INFORMATION
  Report Type: 
  Country: None (occurrence: None)
  Receive Date: 20050912
  Receipt Date: 20050728
  Transmission Date: 20060218
  Serious: Yes (Hospitalization)
  Sender: FDA-Public Use
  Company Number: 200512573FR

PATIENT
  Age: 23 Year
  Sex: Female
  Weight: 39 kg

DRUGS (11)
  1. HYDROCORTISONE [Suspect]
     Route: 048
  2. LEVOTHYROXINE SODIUM [Suspect]
     Route: 048
  3. RENAGEL [Suspect]
     Route: 048
  4. PEGASYS [Suspect]
     Route: 058
     Dates: start: 20050104, end: 20050325
  5. COPEGUS [Suspect]
     Route: 048
     Dates: start: 20050104, end: 20050325
  6. OMEPRAZOLE [Suspect]
     Route: 048
  7. KAYEXALATE [Concomitant]
     Route: 048
  8. CLARYTINE [Concomitant]
     Route: 048
  9. DOLIPRANE [Concomitant]
     Route: 048
  10. BICARBONATE SODIUM [Concomitant]
     Route: 048
  11. ARANESP [Concomitant]

REACTIONS (12)
  - ABSCESS [None]
  - BLOOD PRESSURE DIASTOLIC DECREASED [None]
  - CHILLS [None]
  - DYSPNOEA [None]
  - EAR INFECTION [None]
  - ENDOCARDITIS [None]
  - ENDOCARDITIS STAPHYLOCOCCAL [None]
  - EPISTAXIS [None]
  - ICHTHYOSIS [None]
  - LYMPHADENOPATHY [None]
  - PYREXIA [None]
  - SINUS TACHYCARDIA [None]
